FAERS Safety Report 8734569 (Version 3)
Quarter: 2014Q2

REPORT INFORMATION
  Report Type: Report from Study
  Country: AU (occurrence: AU)
  Receive Date: 20120821
  Receipt Date: 20140522
  Transmission Date: 20141212
  Serious: Yes (Hospitalization, Other)
  Sender: FDA-Public Use
  Company Number: AU-BRISTOL-MYERS SQUIBB COMPANY-16849085

PATIENT
  Age: 61 Year
  Sex: Male
  Weight: 76 kg

DRUGS (8)
  1. ORENCIA [Suspect]
     Indication: RHEUMATOID ARTHRITIS
     Route: 042
     Dates: start: 20110115
  2. PREDNISOLONE [Concomitant]
     Dosage: STOPPED
  3. WARFARIN [Concomitant]
  4. LASIX [Concomitant]
  5. SOTALOL [Concomitant]
  6. GEMFIBROZIL [Concomitant]
     Dosage: GEMHEXAL, 1DF= 1 UNIT NOS
  7. LIPITOR [Concomitant]
  8. SOTALOL [Concomitant]

REACTIONS (3)
  - Skin cancer [Recovered/Resolved]
  - Cardiac disorder [Recovered/Resolved]
  - Cholecystitis [Unknown]
